FAERS Safety Report 8125844-4 (Version None)
Quarter: 2012Q1

REPORT INFORMATION
  Report Type: 
  Country: None (occurrence: None)
  Receive Date: 20120209
  Receipt Date: 20120127
  Transmission Date: 20120608
  Serious: Yes (Other)
  Sender: FDA-Public Use
  Company Number: AU-MYLANLABS-2012S1002321

PATIENT
  Age: 61 Year
  Sex: Female

DRUGS (5)
  1. CLOZAPINE [Suspect]
     Indication: SCHIZOAFFECTIVE DISORDER
     Dosage: 400 MG/DAY
     Route: 065
  2. VALPROIC ACID [Concomitant]
     Indication: SCHIZOAFFECTIVE DISORDER
     Dosage: 1500 MG/DAY
     Route: 065
  3. ARIPIPRAZOLE [Concomitant]
     Indication: SCHIZOAFFECTIVE DISORDER
     Dosage: 30MG
     Route: 065
  4. LORAZEPAM [Concomitant]
     Dosage: PRO RE NATA
     Route: 065
  5. OLANZAPINE [Suspect]
     Indication: SCHIZOAFFECTIVE DISORDER
     Dosage: 10MG
     Route: 065

REACTIONS (2)
  - ELECTROCARDIOGRAM QT PROLONGED [None]
  - CATATONIA [None]
